FAERS Safety Report 12388350 (Version 1)
Quarter: 2016Q2

REPORT INFORMATION
  Report Type: Spontaneous
  Country: US (occurrence: None)
  Receive Date: 20160519
  Receipt Date: 20160519
  Transmission Date: 20160815
  Serious: Yes (Life-Threatening, Hospitalization)
  Sender: FDA-Public Use
  Company Number: None

PATIENT
  Age: 61 Year
  Sex: Female
  Weight: 96.62 kg

DRUGS (4)
  1. DORZOLAMIDE HCL OP, 2 % [Suspect]
     Active Substance: DORZOLAMIDE HYDROCHLORIDE
     Indication: GLAUCOMA
     Dosage: 1 DROP(S) TWICE A DAY INTO THE EYE
     Route: 047
     Dates: start: 20160402, end: 20160406
  2. COMBIGAN [Suspect]
     Active Substance: BRIMONIDINE TARTRATE\TIMOLOL MALEATE
  3. MOTRIN [Suspect]
     Active Substance: IBUPROFEN
  4. TRAVATAN Z [Suspect]
     Active Substance: TRAVOPROST

REACTIONS (7)
  - Central nervous system lesion [None]
  - Headache [None]
  - Hypoacusis [None]
  - Nervousness [None]
  - Speech disorder [None]
  - Confusional state [None]
  - Toothache [None]

NARRATIVE: CASE EVENT DATE: 20160406
